FAERS Safety Report 4547157-X (Version None)
Quarter: 2005Q1

REPORT INFORMATION
  Report Type: 
  Country: None (occurrence: None)
  Receive Date: 20050105
  Receipt Date: 20041214
  Transmission Date: 20050727
  Serious: Yes (Hospitalization)
  Sender: FDA-Public Use
  Company Number: US_0407104266

PATIENT
  Age: 37 Year
  Sex: Male

DRUGS (19)
  1. ZYPREXA [Suspect]
     Indication: BIPOLAR DISORDER
     Dosage: 30 MG/D
     Dates: start: 20020315, end: 20040510
  2. COGENTIN [Concomitant]
  3. TRILEPTAL [Concomitant]
  4. EFFEXOR XR [Concomitant]
  5. ARICEPT [Concomitant]
  6. SEROQUEL [Concomitant]
  7. PROVIGIL [Concomitant]
  8. TRILAFON (PERPHENAZINE ENANTATE) [Concomitant]
  9. GLUCOPHAGE [Concomitant]
  10. DEPAKOTE [Concomitant]
  11. LEVOXYL [Concomitant]
  12. ZONEGRAN [Concomitant]
  13. ZANTAC [Concomitant]
  14. CELEXA [Concomitant]
  15. ABILIFY [Concomitant]
  16. RISPERDAL [Concomitant]
  17. VITAMIN E [Concomitant]
  18. PROVIGIL [Concomitant]
  19. LISINOPRIL [Concomitant]

REACTIONS (12)
  - ANOREXIA [None]
  - ANXIETY [None]
  - CEREBRAL ATROPHY [None]
  - CONFUSIONAL STATE [None]
  - DIABETES MELLITUS [None]
  - INSOMNIA [None]
  - LIBIDO DECREASED [None]
  - MIGRAINE [None]
  - SOCIAL AVOIDANT BEHAVIOUR [None]
  - SOMNOLENCE [None]
  - TOOTH IMPACTED [None]
  - WEIGHT INCREASED [None]
